FAERS Safety Report 24421786 (Version 1)
Quarter: 2024Q4

REPORT INFORMATION
  Report Type: Spontaneous
  Country: SK (occurrence: SK)
  Receive Date: 20241010
  Receipt Date: 20241010
  Transmission Date: 20250115
  Serious: Yes (Other)
  Sender: ABBVIE
  Company Number: SK-APIL-2311958US

PATIENT

DRUGS (2)
  1. OZURDEX [Suspect]
     Active Substance: DEXAMETHASONE
     Indication: Diabetic retinal oedema
     Dosage: TIME INTERVAL: AS NECESSARY
     Route: 050
  2. OZURDEX [Suspect]
     Active Substance: DEXAMETHASONE
     Indication: Diabetic retinopathy

REACTIONS (6)
  - Epiretinal membrane [Unknown]
  - Necrotising retinitis [Unknown]
  - Intraocular pressure increased [Unknown]
  - Cataract [Unknown]
  - Unevaluable event [Unknown]
  - Off label use [Unknown]
